FAERS Safety Report 10089743 (Version 3)
Quarter: 2014Q2

REPORT INFORMATION
  Report Type: Spontaneous
  Country: JP (occurrence: JP)
  Receive Date: 20140421
  Receipt Date: 20140604
  Transmission Date: 20141212
  Serious: Yes (Hospitalization)
  Sender: FDA-Public Use
  Company Number: JP-PFIZER INC-2014109414

PATIENT
  Age: 82 Year
  Sex: Male
  Weight: 43.05 kg

DRUGS (6)
  1. SOLANAX [Suspect]
     Indication: DYSPNOEA
     Dosage: 0.2 MG, 1X/DAY
     Route: 048
     Dates: start: 20140401, end: 20140401
  2. SOLANAX [Suspect]
     Dosage: 0.2 MG, 3X/DAY
     Route: 048
     Dates: start: 20140402, end: 20140403
  3. SOLANAX [Suspect]
     Dosage: 0.4 MG, 3X/DAY
     Route: 048
     Dates: start: 20140404, end: 20140413
  4. GRAMALIL [Suspect]
     Dosage: 25 MG, 1X/DAY
     Route: 048
     Dates: end: 20140413
  5. MORPHINE [Concomitant]
     Dosage: UNK
     Dates: end: 20140413
  6. CELECOX [Concomitant]
     Dosage: UNK
     Dates: end: 20140413

REACTIONS (1)
  - Neuroleptic malignant syndrome [Recovered/Resolved]
